FAERS Safety Report 7461406-X (Version None)
Quarter: 2011Q2

REPORT INFORMATION
  Report Type: 
  Country: None (occurrence: None)
  Receive Date: 20110428
  Receipt Date: 20100312
  Transmission Date: 20111010
  Serious: Yes (Hospitalization)
  Sender: FDA-Public Use
  Company Number: 2010GW000187

PATIENT
  Sex: Female

DRUGS (1)
  1. ALDARA [Suspect]
     Indication: SKIN CANCER
     Dosage: 5 PCT;TOP
     Route: 061

REACTIONS (2)
  - CONDITION AGGRAVATED [None]
  - CARDIAC DISORDER [None]
